FAERS Safety Report 17860001 (Version 1)
Quarter: 2020Q2

REPORT INFORMATION
  Report Type: Spontaneous
  Country: US (occurrence: US)
  Receive Date: 20200604
  Receipt Date: 20200604
  Transmission Date: 20200714
  Serious: Yes (Hospitalization)
  Sender: FDA-Public Use
  Company Number: None

PATIENT
  Age: 67 Year
  Sex: Female

DRUGS (6)
  1. PREDNISONE TAB 5MG [Concomitant]
     Active Substance: PREDNISONE
  2. METHOTREXATE TAB 2.5MG [Concomitant]
     Active Substance: METHOTREXATE
  3. ORENCIA [Suspect]
     Active Substance: ABATACEPT
     Dosage: ?          OTHER FREQUENCY:EVERY WEEK;?
     Route: 058
  4. CALCIUM 600 TAB [Concomitant]
  5. FOLIC ACID TAB 1MG [Concomitant]
  6. ROSUVASTATIN TAB 5MG [Concomitant]
     Active Substance: ROSUVASTATIN

REACTIONS (2)
  - Therapy interrupted [None]
  - Condition aggravated [None]

NARRATIVE: CASE EVENT DATE: 20200603
